FAERS Safety Report 25118036 (Version 1)
Quarter: 2025Q1

REPORT INFORMATION
  Report Type: Spontaneous
  Country: US (occurrence: None)
  Receive Date: 20250324
  Receipt Date: 20250324
  Transmission Date: 20250409
  Serious: Yes (Other)
  Sender: FDA-CTU
  Company Number: None

PATIENT
  Age: 43 Year
  Sex: Female
  Weight: 59.4 kg

DRUGS (1)
  1. AMPHETAMINE\DEXTROAMPHETAMINE [Suspect]
     Active Substance: AMPHETAMINE\DEXTROAMPHETAMINE
     Indication: Hypersomnia
     Dosage: FREQUENCY : TWICE A DAY;?
     Route: 048
     Dates: start: 20250318, end: 20250322

REACTIONS (11)
  - Hypersomnia [None]
  - Psychiatric symptom [None]
  - Therapy cessation [None]
  - Headache [None]
  - Brain fog [None]
  - Disturbance in attention [None]
  - Migraine [None]
  - Anxiety [None]
  - Tachyphrenia [None]
  - Crying [None]
  - Depression [None]

NARRATIVE: CASE EVENT DATE: 20250322
